FAERS Safety Report 12731371 (Version 1)
Quarter: 2016Q3

REPORT INFORMATION
  Report Type: Spontaneous
  Country: US (occurrence: US)
  Receive Date: 20160912
  Receipt Date: 20160912
  Transmission Date: 20161109
  Serious: No
  Sender: FDA-Public Use
  Company Number: US-ASTRAZENECA-2016SE71276

PATIENT
  Age: 57 Year
  Sex: Female
  Weight: 68.5 kg

DRUGS (15)
  1. TRESIBA [Concomitant]
     Active Substance: INSULIN DEGLUDEC
  2. NOVOLOG [Concomitant]
     Active Substance: INSULIN ASPART
  3. LOTREL [Concomitant]
     Active Substance: AMLODIPINE BESYLATE\BENAZEPRIL HYDROCHLORIDE
  4. GABAPENTIN. [Concomitant]
     Active Substance: GABAPENTIN
  5. ALBUTEROL HFA [Concomitant]
     Active Substance: ALBUTEROL SULFATE
  6. HCTZ [Concomitant]
     Active Substance: HYDROCHLOROTHIAZIDE
  7. FORXIGA [Suspect]
     Active Substance: DAPAGLIFLOZIN
     Indication: TYPE 1 DIABETES MELLITUS
     Route: 048
  8. INSULIN DETEMIR [Suspect]
     Active Substance: INSULIN DETEMIR
     Indication: TYPE 1 DIABETES MELLITUS
     Route: 065
     Dates: start: 20140915
  9. CELEXA [Concomitant]
     Active Substance: CITALOPRAM HYDROBROMIDE
  10. LIDOCAINE. [Concomitant]
     Active Substance: LIDOCAINE
  11. ZOCOR [Concomitant]
     Active Substance: SIMVASTATIN
  12. XARELTO [Concomitant]
     Active Substance: RIVAROXABAN
  13. HUMALOG [Suspect]
     Active Substance: INSULIN LISPRO
     Indication: TYPE 1 DIABETES MELLITUS
     Route: 065
  14. INSULIN DETEMIR [Suspect]
     Active Substance: INSULIN DETEMIR
     Indication: TYPE 1 DIABETES MELLITUS
     Route: 065
  15. COREG [Concomitant]
     Active Substance: CARVEDILOL

REACTIONS (2)
  - Blood glucose decreased [Recovered/Resolved]
  - Loss of consciousness [Recovered/Resolved]

NARRATIVE: CASE EVENT DATE: 20151130
